FAERS Safety Report 5218215-1 (Version None)
Quarter: 2007Q1

REPORT INFORMATION
  Report Type: 
  Country: None (occurrence: None)
  Receive Date: 20061130
  Receipt Date: 20060807
  Transmission Date: 20070707
  Serious: Yes (Other)
  Sender: FDA-Public Use
  Company Number: US200511001584

PATIENT
  Age: 21 Year
  Sex: Female
  Weight: 92.1 kg

DRUGS (2)
  1. ZYPREXA [Suspect]
     Indication: MOOD SWINGS
     Dosage: 20 MG, ORAL
     Route: 048
     Dates: start: 20031201, end: 20040406
  2. ABILIFY [Concomitant]

REACTIONS (10)
  - BILIARY TRACT DISORDER [None]
  - BLOOD CHOLESTEROL ABNORMAL [None]
  - BLOOD DISORDER [None]
  - BLOOD TRIGLYCERIDES INCREASED [None]
  - DIABETES MELLITUS NON-INSULIN-DEPENDENT [None]
  - HYPERTENSION [None]
  - METABOLIC DISORDER [None]
  - OBESITY [None]
  - POLYCYSTIC OVARIES [None]
  - WEIGHT INCREASED [None]
